FAERS Safety Report 12689488 (Version 1)
Quarter: 2016Q3

REPORT INFORMATION
  Report Type: Spontaneous
  Country: US (occurrence: None)
  Receive Date: 20160825
  Receipt Date: 20160825
  Transmission Date: 20161109
  Serious: Yes (Other)
  Sender: FDA-Public Use
  Company Number: None

PATIENT
  Age: 63 Year
  Sex: Female
  Weight: 86.18 kg

DRUGS (17)
  1. ESTRACE [Concomitant]
     Active Substance: ESTRADIOL
  2. VITAMIN D [Concomitant]
     Active Substance: CHOLECALCIFEROL
  3. KLONOPIN [Concomitant]
     Active Substance: CLONAZEPAM
  4. DIAZEPAM. [Concomitant]
     Active Substance: DIAZEPAM
  5. TRIMETHOPRIM. [Concomitant]
     Active Substance: TRIMETHOPRIM
  6. MIRAPEX [Concomitant]
     Active Substance: PRAMIPEXOLE DIHYDROCHLORIDE
  7. SYMBICORT [Concomitant]
     Active Substance: BUDESONIDE\FORMOTEROL FUMARATE DIHYDRATE
  8. CINNAMON. [Concomitant]
     Active Substance: CINNAMON
  9. NALTREXONE HCL 3MG, 3 MG MD CUSTOM RX [Suspect]
     Active Substance: NALTREXONE HYDROCHLORIDE
     Indication: FIBROMYALGIA
     Route: 048
     Dates: start: 20160820, end: 20160820
  10. TIZANIDINE. [Concomitant]
     Active Substance: TIZANIDINE
  11. SERTRALINE [Concomitant]
     Active Substance: SERTRALINE HYDROCHLORIDE
  12. CALCIUM +C CALCIUM LACTATE [Concomitant]
  13. CHOLESTOFF PLUS [Concomitant]
  14. FUTICASONE [Concomitant]
  15. VENTOLIN [Concomitant]
     Active Substance: ALBUTEROL SULFATE
  16. LOSARTAN. [Concomitant]
     Active Substance: LOSARTAN
  17. TRAMADOL. [Concomitant]
     Active Substance: TRAMADOL

REACTIONS (3)
  - Seizure [None]
  - Headache [None]
  - Balance disorder [None]

NARRATIVE: CASE EVENT DATE: 20160820
